FAERS Safety Report 4658966-0 (Version None)
Quarter: 2005Q2

REPORT INFORMATION
  Report Type: 
  Country: None (occurrence: None)
  Receive Date: 20050509
  Receipt Date: 20050502
  Transmission Date: 20051028
  Serious: Yes (Death)
  Sender: FDA-Public Use
  Company Number: 2005UW06731

PATIENT
  Age: 18 Year
  Sex: Female
  Weight: 52.163 kg

DRUGS (5)
  1. SEROQUEL [Suspect]
     Indication: DEPRESSION
     Dosage: 600 MG DAILY PO
     Route: 048
  2. SEROQUEL [Suspect]
     Indication: DEPRESSION
     Dosage: 500 MG DAILY PO
     Route: 048
  3. CLONAZEPAM [Concomitant]
  4. GABITRIL [Concomitant]
  5. LAMICTAL [Concomitant]

REACTIONS (1)
  - DEATH [None]
